FAERS Safety Report 24048353 (Version 2)
Quarter: 2024Q3

REPORT INFORMATION
  Report Type: Report from Study
  Country: IT (occurrence: IT)
  Receive Date: 20240704
  Receipt Date: 20240704
  Transmission Date: 20241016
  Serious: No
  Sender: CELLTRION
  Company Number: IT-CELLTRION INC.-2024IT015798

PATIENT

DRUGS (4)
  1. HERZUMA [Suspect]
     Active Substance: TRASTUZUMAB-PKRB
     Indication: Breast cancer
     Dosage: 456 MG
     Route: 042
     Dates: start: 20240207, end: 20240207
  2. CARBOPLATIN [Suspect]
     Active Substance: CARBOPLATIN
     Indication: Breast cancer
     Dosage: 300 MG (ADDITIONAL INFORMATION ON DRUG: OFF LABEL USE)
     Route: 042
     Dates: start: 20240207, end: 20240207
  3. PERJETA [Suspect]
     Active Substance: PERTUZUMAB
     Indication: Breast cancer
     Dosage: 840 MG
     Route: 042
     Dates: start: 20240207, end: 20240207
  4. PACLITAXEL [Suspect]
     Active Substance: PACLITAXEL
     Indication: Breast cancer
     Dosage: 120 MG
     Route: 042
     Dates: start: 20240207, end: 20240207

REACTIONS (2)
  - Epistaxis [Recovering/Resolving]
  - Off label use [Recovering/Resolving]

NARRATIVE: CASE EVENT DATE: 20240207
